FAERS Safety Report 19022204 (Version 1)
Quarter: 2021Q1

REPORT INFORMATION
  Report Type: Spontaneous
  Country: FR (occurrence: FR)
  Receive Date: 20210317
  Receipt Date: 20210317
  Transmission Date: 20210420
  Serious: Yes (Hospitalization, Other)
  Sender: FDA-Public Use
  Company Number: FR-ANIPHARMA-2021-FR-000058

PATIENT
  Age: 78 Year
  Sex: Male

DRUGS (5)
  1. ABIRATERONE ACETATE. [Suspect]
     Active Substance: ABIRATERONE ACETATE
     Dosage: UNKNOWN DOSE EVERY CYCLE / 1000 MG Q_CYCLE
     Route: 042
     Dates: start: 201811, end: 201811
  2. BICALUTAMIDE. [Suspect]
     Active Substance: BICALUTAMIDE
     Indication: PROSTATE CANCER METASTATIC
     Dosage: 50 MG UNK
     Route: 048
     Dates: start: 20170317, end: 201704
  3. PREDNISONE. [Concomitant]
     Active Substance: PREDNISONE
     Dosage: 10 MG UNK
     Route: 065
     Dates: start: 20170713, end: 201811
  4. DEGARELIX ACETATE [Suspect]
     Active Substance: DEGARELIX ACETATE
     Dosage: 80 MG UNK
     Route: 065
     Dates: start: 201703, end: 201810
  5. DOCETAXEL. [Suspect]
     Active Substance: DOCETAXEL
     Dosage: UNKNOWN DOSE EVERY CYCLE / 60 MG Q_CYCLE
     Route: 042
     Dates: start: 20170804, end: 20170804

REACTIONS (2)
  - Prostatitis [Recovered/Resolved]
  - Urinary retention [Unknown]

NARRATIVE: CASE EVENT DATE: 2018
